FAERS Safety Report 16464377 (Version 1)
Quarter: 2019Q3

REPORT INFORMATION
  Report Type: Spontaneous
  Country: US (occurrence: US)
  Receive Date: 20190620
  Receipt Date: 20190620
  Transmission Date: 20191004
  Serious: Yes (Hospitalization)
  Sender: FDA-Public Use
  Company Number: None

PATIENT
  Age: 56 Year
  Sex: Female
  Weight: 87.75 kg

DRUGS (8)
  1. NEW U LIFE SOMADERM GEL [Suspect]
     Active Substance: HOMEOPATHICS
     Indication: PRODUCT USED FOR UNKNOWN INDICATION
     Route: 061
  2. LISINOPRIL. [Concomitant]
     Active Substance: LISINOPRIL
  3. CINNAMON. [Concomitant]
     Active Substance: CINNAMON
  4. POTASSIUM [Concomitant]
     Active Substance: POTASSIUM
  5. BIOTIN [Concomitant]
     Active Substance: BIOTIN
  6. MAGNESIUM [Concomitant]
     Active Substance: MAGNESIUM
  7. TRIAMTERENE AND HYDROCHLOROTHIAZIDE [Concomitant]
     Active Substance: HYDROCHLOROTHIAZIDE\TRIAMTERENE
  8. VITAMIN D3 [Concomitant]
     Active Substance: CHOLECALCIFEROL

REACTIONS (3)
  - Uterine polyp [None]
  - Alopecia [None]
  - Vaginal haemorrhage [None]

NARRATIVE: CASE EVENT DATE: 20180602
